FAERS Safety Report 5848985-0 (Version None)
Quarter: 2008Q3

REPORT INFORMATION
  Report Type: 
  Country: None (occurrence: None)
  Receive Date: 20080818
  Receipt Date: 20080818
  Transmission Date: 20090109
  Serious: Yes (Life-Threatening)
  Sender: FDA-Public Use
  Company Number: None

PATIENT
  Sex: Female
  Weight: 58.514 kg

DRUGS (1)
  1. DIGITEK  250 MCG  LBLR BERTEK [Suspect]
     Dosage: 1 TABLET EVERY DAY
     Dates: start: 20080408, end: 20080630

REACTIONS (9)
  - DEPRESSED LEVEL OF CONSCIOUSNESS [None]
  - DIZZINESS [None]
  - EYE DISORDER [None]
  - FATIGUE [None]
  - HEART RATE INCREASED [None]
  - HYPOTENSION [None]
  - IMPAIRED DRIVING ABILITY [None]
  - NAUSEA [None]
  - SOMNOLENCE [None]
